FAERS Safety Report 10377880 (Version 2)
Quarter: 2014Q4

REPORT INFORMATION
  Report Type: Spontaneous
  Country: DE (occurrence: DE)
  Receive Date: 20140812
  Receipt Date: 20141021
  Transmission Date: 20150528
  Serious: Yes (Hospitalization, Other)
  Sender: FDA-Public Use
  Company Number: DE-ROCHE-1448247

PATIENT
  Age: 14 Year
  Sex: Male
  Weight: 86.6 kg

DRUGS (5)
  1. XOLAIR [Suspect]
     Active Substance: OMALIZUMAB
     Indication: ASTHMA
     Dosage: 150 MG, 75 MG
     Route: 058
     Dates: start: 20110324, end: 20110805
  2. VIANI FORTE [Concomitant]
     Active Substance: FLUTICASONE PROPIONATE\SALMETEROL XINAFOATE
     Route: 065
     Dates: start: 20060601
  3. SINGULAIR [Concomitant]
     Active Substance: MONTELUKAST SODIUM
     Route: 065
     Dates: start: 20080813
  4. XUSAL [Concomitant]
     Active Substance: LEVOCETIRIZINE DIHYDROCHLORIDE
     Route: 065
     Dates: start: 20140301
  5. XOLAIR [Suspect]
     Active Substance: OMALIZUMAB
     Indication: HYPERSENSITIVITY
     Route: 058
     Dates: start: 20140804, end: 20140804

REACTIONS (5)
  - Hypersensitivity [Unknown]
  - Anaphylactoid reaction [Unknown]
  - Drug specific antibody present [Unknown]
  - Asthma [Unknown]
  - Anaphylactic shock [Recovered/Resolved]

NARRATIVE: CASE EVENT DATE: 20140805
